FAERS Safety Report 24779722 (Version 2)
Quarter: 2025Q2

REPORT INFORMATION
  Report Type: Report from Study
  Country: KR (occurrence: KR)
  Receive Date: 20241226
  Receipt Date: 20250409
  Transmission Date: 20250716
  Serious: Yes (Other)
  Sender: JOHNSON AND JOHNSON
  Company Number: KR-JNJFOC-20241273195

PATIENT
  Age: 69 Year
  Sex: Female

DRUGS (1)
  1. LAZERTINIB [Suspect]
     Active Substance: LAZERTINIB
     Indication: Non-small cell lung cancer
     Route: 048
     Dates: start: 20230202, end: 20230922

REACTIONS (2)
  - Neuropathy peripheral [Recovering/Resolving]
  - Macule [Recovered/Resolved]

NARRATIVE: CASE EVENT DATE: 20230214
